FAERS Safety Report 8399020-4 (Version None)
Quarter: 2012Q2

REPORT INFORMATION
  Report Type: 
  Country: None (occurrence: None)
  Receive Date: 20120531
  Receipt Date: 20120529
  Transmission Date: 20120825
  Serious: Yes (Other)
  Sender: FDA-Public Use
  Company Number: US-ELI_LILLY_AND_COMPANY-US201205010048

PATIENT
  Sex: Male

DRUGS (2)
  1. PLAVIX [Concomitant]
  2. CIALIS [Suspect]
     Dosage: UNK, UNKNOWN

REACTIONS (1)
  - HAEMORRHAGE INTRACRANIAL [None]
